FAERS Safety Report 10626638 (Version 2)
Quarter: 2014Q4

REPORT INFORMATION
  Report Type: Spontaneous
  Country: JP (occurrence: JP)
  Receive Date: 20141204
  Receipt Date: 20141217
  Transmission Date: 20150529
  Serious: Yes (Other)
  Sender: FDA-Public Use
  Company Number: JP-PFIZER INC-2014329921

PATIENT
  Age: 82 Year
  Sex: Male

DRUGS (3)
  1. TOLVAPTAN [Concomitant]
     Active Substance: TOLVAPTAN
     Indication: CARDIAC FAILURE
  2. AMIODARONE HCL [Suspect]
     Active Substance: AMIODARONE HYDROCHLORIDE
     Indication: ATRIAL FIBRILLATION
     Dosage: 200 MG, DAILY
     Route: 048
  3. TOLVAPTAN [Concomitant]
     Active Substance: TOLVAPTAN
     Indication: FLUID RETENTION
     Dosage: UNK

REACTIONS (3)
  - Depressed level of consciousness [Unknown]
  - Renal impairment [Recovered/Resolved]
  - Hepatitis fulminant [Recovered/Resolved]
